FAERS Safety Report 18799634 (Version 1)
Quarter: 2021Q1

REPORT INFORMATION
  Report Type: Spontaneous
  Country: JP (occurrence: JP)
  Receive Date: 20210128
  Receipt Date: 20210128
  Transmission Date: 20210419
  Serious: Yes (Hospitalization)
  Sender: FDA-Public Use
  Company Number: JP-STRIDES ARCOLAB LIMITED-2021SP001118

PATIENT
  Age: 35 Year
  Sex: Male

DRUGS (4)
  1. HYDROCORTISONE. [Suspect]
     Active Substance: HYDROCORTISONE
     Dosage: 100 MILLIGRAM PER DAY WAS STARTED FOR 2 DAYS IN THE ACUTE PHASE
     Route: 042
  2. HYDROCORTISONE. [Suspect]
     Active Substance: HYDROCORTISONE
     Indication: ADRENOCORTICOTROPIC HORMONE DEFICIENCY
     Dosage: 15 MILLIGRAM PER DAY (SINCE HIS AGE OF 24 YEARS)
     Route: 065
  3. HYDROCORTISONE. [Suspect]
     Active Substance: HYDROCORTISONE
     Dosage: 100 MILLIGRAM PER DAY, INFUSION
     Route: 042
     Dates: start: 201312
  4. HYDROCORTISONE. [Suspect]
     Active Substance: HYDROCORTISONE
     Dosage: UNK,GRADUAL REDUCTION OF DOSE
     Route: 065

REACTIONS (2)
  - Rebound effect [Unknown]
  - Treatment noncompliance [Unknown]
